FAERS Safety Report 5279760-6 (Version None)
Quarter: 2007Q1

REPORT INFORMATION
  Report Type: 
  Country: None (occurrence: None)
  Receive Date: 20061208
  Receipt Date: 20050527
  Transmission Date: 20070707
  Serious: No
  Sender: FDA-Public Use
  Company Number: 2005UW01155

PATIENT
  Age: 56 Year
  Sex: Female
  Weight: 64.4108 kg

DRUGS (2)
  1. CRESTOR [Suspect]
     Indication: BLOOD CHOLESTEROL INCREASED
     Dosage: 10 MG DAILY PO
     Route: 048
     Dates: start: 20040814, end: 20041023
  2. SYNTHROID [Concomitant]

REACTIONS (3)
  - MALAISE [None]
  - MUSCULAR WEAKNESS [None]
  - MYALGIA [None]
